FAERS Safety Report 8017408-8 (Version None)
Quarter: 2012Q1

REPORT INFORMATION
  Report Type: 
  Country: None (occurrence: None)
  Receive Date: 20120102
  Receipt Date: 20111219
  Transmission Date: 20120608
  Serious: Yes (Death)
  Sender: FDA-Public Use
  Company Number: US-PFIZER INC-2011311483

PATIENT
  Age: 19 Year
  Sex: Male

DRUGS (4)
  1. DESVENLAFAXINE [Suspect]
     Dosage: UNK
     Route: 048
  2. ACETAMINOPHEN [Suspect]
     Dosage: UNK
     Route: 048
  3. OLANZAPINE [Suspect]
     Route: 048
  4. ETHANOL [Suspect]
     Dosage: UNK
     Route: 048

REACTIONS (3)
  - CARDIAC ARREST [None]
  - DEATH [None]
  - RESPIRATORY ARREST [None]
